FAERS Safety Report 19423851 (Version 1)
Quarter: 2021Q2

REPORT INFORMATION
  Report Type: Spontaneous
  Country: PL (occurrence: PL)
  Receive Date: 20210616
  Receipt Date: 20210616
  Transmission Date: 20210717
  Serious: Yes (Hospitalization, Other)
  Sender: FDA-Public Use
  Company Number: PL-PFIZER INC-2021638664

PATIENT
  Age: 41 Year
  Sex: Male

DRUGS (16)
  1. LIGNOCAINE [LIDOCAINE] [Suspect]
     Active Substance: LIDOCAINE
     Indication: CARDIAC FAILURE
     Dosage: UNK
     Route: 042
     Dates: start: 20201121
  2. AMIODARONE [Suspect]
     Active Substance: AMIODARONE
     Dosage: UNK
     Route: 042
     Dates: start: 20201117
  3. ENOXAPARIN [Suspect]
     Active Substance: ENOXAPARIN
     Indication: CARDIAC FAILURE
     Dosage: 80 MG, 2X/DAY, (80 MG, 2X1 AMPOULE)
     Route: 058
  4. AMIODARONE [Suspect]
     Active Substance: AMIODARONE
     Dosage: UNK
     Route: 042
     Dates: start: 20201121
  5. CARVEDILOL. [Suspect]
     Active Substance: CARVEDILOL
     Indication: CARDIAC FAILURE
     Dosage: 3.13 MG, (3.125 MG)
     Route: 065
  6. AMIODARONE [Suspect]
     Active Substance: AMIODARONE
     Indication: CARDIAC FAILURE
     Dosage: UNK
     Route: 042
     Dates: start: 20201123
  7. EPLERENONE. [Suspect]
     Active Substance: EPLERENONE
     Indication: CARDIAC FAILURE
     Dosage: 25 MG
     Route: 065
  8. SACUBITRIL/VALSARTAN [Suspect]
     Active Substance: SACUBITRIL\VALSARTAN
     Indication: CARDIAC FAILURE
     Dosage: UNK, (49/51 MG, 2X   )
     Route: 065
     Dates: start: 20201125
  9. FUROSEMIDE. [Suspect]
     Active Substance: FUROSEMIDE
     Indication: CARDIAC FAILURE
     Dosage: UNK,2X1 AMPULE
     Route: 042
  10. ATORVASTATIN CALCIUM. [Suspect]
     Active Substance: ATORVASTATIN CALCIUM
     Indication: CARDIAC FAILURE
     Dosage: 80 MG
     Route: 065
  11. SACUBITRIL/VALSARTAN [Suspect]
     Active Substance: SACUBITRIL\VALSARTAN
     Dosage: UNK
     Route: 065
     Dates: start: 20201120
  12. PROPRANOLOL [Suspect]
     Active Substance: PROPRANOLOL HYDROCHLORIDE
     Indication: CARDIAC FAILURE
     Dosage: 20 MG, 3X/DAY
     Route: 065
     Dates: start: 20201120
  13. TORASEMIDE [Suspect]
     Active Substance: TORSEMIDE
     Indication: CARDIAC FAILURE
     Dosage: 20 MG
     Route: 048
  14. DIGOXIN. [Suspect]
     Active Substance: DIGOXIN
     Indication: CARDIAC FAILURE
     Dosage: UNK, 1 AMPOULE
     Route: 042
  15. PERINDOPRIL [Suspect]
     Active Substance: PERINDOPRIL
     Indication: CARDIAC FAILURE
     Dosage: 5 MG
     Route: 065
  16. METOPROLOL SUCCINATE. [Suspect]
     Active Substance: METOPROLOL SUCCINATE
     Indication: CARDIAC FAILURE
     Dosage: 50 MG, 2X
     Route: 065
     Dates: start: 20201123

REACTIONS (11)
  - Pyrexia [Unknown]
  - Cardiac arrest [Recovered/Resolved]
  - Electrocardiogram QT prolonged [Unknown]
  - Hypotonia [Unknown]
  - Cardiac arrest [Recovered/Resolved]
  - Myocarditis [Unknown]
  - Off label use [Unknown]
  - Psychotic disorder [Unknown]
  - Cardiac arrest [Recovered/Resolved]
  - Cardiac arrest [Recovered/Resolved]
  - Cardiac arrest [Recovered/Resolved]

NARRATIVE: CASE EVENT DATE: 20201117
